FAERS Safety Report 20048598 (Version 1)
Quarter: 2021Q4

REPORT INFORMATION
  Report Type: Spontaneous
  Country: US (occurrence: US)
  Receive Date: 20211109
  Receipt Date: 20211109
  Transmission Date: 20220303
  Serious: Yes (Other)
  Sender: FDA-Public Use
  Company Number: US-PFIZER INC-202101449376

PATIENT
  Age: 69 Year
  Sex: Female
  Weight: 67.59 kg

DRUGS (1)
  1. CHANTIX [Suspect]
     Active Substance: VARENICLINE TARTRATE
     Dosage: 1 MG, 2X/DAY
     Route: 048
     Dates: start: 20200617

REACTIONS (2)
  - Lung cancer metastatic [Not Recovered/Not Resolved]
  - Recalled product administered [Recovered/Resolved]

NARRATIVE: CASE EVENT DATE: 20200617
